FAERS Safety Report 9472712 (Version 1)
Quarter: 2013Q3

REPORT INFORMATION
  Report Type: Report from Study
  Country: CA (occurrence: CA)
  Receive Date: 20130823
  Receipt Date: 20130823
  Transmission Date: 20140515
  Serious: Yes (Other)
  Sender: FDA-Public Use
  Company Number: CA-ABBOTT-13P-028-1135145-00

PATIENT
  Sex: Male
  Weight: 86.26 kg

DRUGS (7)
  1. HUMIRA [Suspect]
     Indication: RHEUMATOID ARTHRITIS
     Route: 058
     Dates: start: 20110825, end: 201301
  2. HUMIRA [Suspect]
     Dates: start: 20130802
  3. PERCOCET [Concomitant]
     Indication: RHEUMATOID ARTHRITIS
     Route: 048
     Dates: start: 2009
  4. NAPROXEN [Concomitant]
     Indication: RHEUMATOID ARTHRITIS
     Route: 048
     Dates: start: 2009
  5. AZATHIOPRINE [Concomitant]
     Indication: RHEUMATOID ARTHRITIS
     Route: 050
     Dates: start: 201305, end: 201307
  6. MULTIVITAMINS [Concomitant]
     Indication: VITAMIN SUPPLEMENTATION
     Route: 048
  7. PREDNISONE [Concomitant]
     Indication: RHEUMATOID ARTHRITIS
     Route: 048
     Dates: start: 20130520

REACTIONS (1)
  - Urinary tract disorder [Not Recovered/Not Resolved]
